FAERS Safety Report 21736773 (Version 1)
Quarter: 2022Q4

REPORT INFORMATION
  Report Type: Spontaneous
  Country: US (occurrence: US)
  Receive Date: 20221216
  Receipt Date: 20221216
  Transmission Date: 20230112
  Serious: No
  Sender: FDA-Public Use
  Company Number: US-VIIV HEALTHCARE LIMITED-US2022AMR187316

PATIENT
  Age: 43 Year
  Sex: Female

DRUGS (2)
  1. RILPIVIRINE [Suspect]
     Active Substance: RILPIVIRINE
     Indication: HIV infection
     Dosage: UNK UNK, Z:ONCE MONTHLY, 400MG-600MG - 2 INJECTIONS, 0MG/2ML
     Route: 030
     Dates: start: 20220110
  2. CABOTEGRAVIR [Suspect]
     Active Substance: CABOTEGRAVIR
     Indication: HIV infection
     Dosage: UNK UNK, Z:ONCE MONTHLY, 400MG-600MG - 2 INJECTIONS, 0MG/2ML
     Route: 030
     Dates: start: 20220110

REACTIONS (1)
  - Inappropriate schedule of product administration [Not Recovered/Not Resolved]

NARRATIVE: CASE EVENT DATE: 20220913
